FAERS Safety Report 5444172-9 (Version None)
Quarter: 2007Q3

REPORT INFORMATION
  Report Type: 
  Country: None (occurrence: None)
  Receive Date: 20070904
  Receipt Date: 20070904
  Transmission Date: 20080115
  Serious: Yes (Other)
  Sender: FDA-Public Use
  Company Number: None

PATIENT

DRUGS (1)
  1. ULTRAM [Suspect]
     Indication: BACK PAIN
     Dosage: ONCE PO Q6 PRN
     Route: 048

REACTIONS (4)
  - ABDOMINAL DISCOMFORT [None]
  - GASTRITIS [None]
  - INADEQUATE ANALGESIA [None]
  - PHARMACEUTICAL PRODUCT COMPLAINT [None]
